FAERS Safety Report 7384847-8 (Version None)
Quarter: 2011Q1

REPORT INFORMATION
  Report Type: 
  Country: None (occurrence: None)
  Receive Date: 20110330
  Receipt Date: 20110322
  Transmission Date: 20110831
  Serious: Yes (Hospitalization)
  Sender: FDA-Public Use
  Company Number: JP-CEPHALON-2011001446

PATIENT
  Age: 52 Year
  Sex: Female

DRUGS (2)
  1. BENDAMUSTINE HCL [Suspect]
     Indication: B-CELL LYMPHOMA
     Route: 042
     Dates: start: 20110303, end: 20110304
  2. RITUXIMAB [Concomitant]
     Indication: B-CELL LYMPHOMA
     Dates: start: 20110224, end: 20110224

REACTIONS (3)
  - HYPONATRAEMIA [None]
  - RENAL FAILURE [None]
  - HYPERURICAEMIA [None]
